FAERS Safety Report 10238149 (Version 2)
Quarter: 2014Q2

REPORT INFORMATION
  Report Type: Report from Study
  Country: US (occurrence: US)
  Receive Date: 20140616
  Receipt Date: 20140624
  Transmission Date: 20141212
  Serious: Yes (Other)
  Sender: FDA-Public Use
  Company Number: PHEH2014US011978

PATIENT
  Age: 59 Year
  Sex: Female

DRUGS (1)
  1. GILENYA [Suspect]
     Indication: MULTIPLE SCLEROSIS
     Dosage: 0.5 MG, QD
     Route: 048
     Dates: start: 20130801

REACTIONS (4)
  - Fall [Unknown]
  - Wrist fracture [Not Recovered/Not Resolved]
  - Tendon rupture [Not Recovered/Not Resolved]
  - Pain in extremity [Not Recovered/Not Resolved]
